FAERS Safety Report 9540791 (Version 1)
Quarter: 2013Q3

REPORT INFORMATION
  Report Type: Spontaneous
  Country: CN (occurrence: CN)
  Receive Date: 20130920
  Receipt Date: 20130920
  Transmission Date: 20140515
  Serious: Yes (Other)
  Sender: FDA-Public Use
  Company Number: CN-PFIZER INC-2013267382

PATIENT
  Age: 24 Year
  Sex: Male
  Weight: 89 kg

DRUGS (2)
  1. CYTOSAR-U [Suspect]
     Indication: LEUKAEMIA
     Dosage: 4 G, 2X/DAY
     Route: 041
     Dates: start: 20120601, end: 20120603
  2. METHOTREXATE SODIUM [Concomitant]
     Indication: LEUKAEMIA
     Dosage: 2.1 G, 1X/DAY
     Route: 041
     Dates: start: 20120601, end: 20120601

REACTIONS (6)
  - Anal haemorrhage [Recovered/Resolved]
  - Proctalgia [Recovered/Resolved]
  - Abnormal faeces [Recovered/Resolved]
  - Mucous membrane disorder [Recovered/Resolved]
  - Pruritus [Recovered/Resolved]
  - Rash [Recovered/Resolved]
